FAERS Safety Report 14679929 (Version 2)
Quarter: 2018Q1

REPORT INFORMATION
  Report Type: Report from Study
  Country: MX (occurrence: MX)
  Receive Date: 20180326
  Receipt Date: 20180326
  Transmission Date: 20180509
  Serious: Yes (Hospitalization, Other)
  Sender: FDA-Public Use
  Company Number: PHHY2018MX047362

PATIENT
  Sex: Female

DRUGS (6)
  1. GALVUS MET [Suspect]
     Active Substance: METFORMIN HYDROCHLORIDE\VILDAGLIPTIN
     Indication: DIABETES MELLITUS
     Dosage: 1 DF (METFORMIN 500 MG, VILDAGLIPTIN 50), QD
     Route: 048
  2. METFORMIN [Suspect]
     Active Substance: METFORMIN HYDROCHLORIDE
     Indication: DIABETES MELLITUS
     Dosage: 1 DF, Q8H
     Route: 065
  3. LEVOTHYROXINE. [Concomitant]
     Active Substance: LEVOTHYROXINE
     Indication: THYROID DISORDER
     Dosage: 1.25 DF, QD (40 YEARS AGO)
     Route: 065
  4. DIOVAN [Suspect]
     Active Substance: VALSARTAN
     Dosage: 80 MG, UNK TAKEN A SHORT PERIOD OF TIME
     Route: 065
  5. CARBAMAZEPINE. [Concomitant]
     Active Substance: CARBAMAZEPINE
     Indication: DIABETIC NEUROPATHY
     Dosage: 1 DF, QD (1 YEARS AGO)
     Route: 065
  6. DIOVAN [Suspect]
     Active Substance: VALSARTAN
     Indication: HYPERTENSION
     Dosage: 1 DF (320 MG), Q12H
     Route: 048
     Dates: start: 2013

REACTIONS (9)
  - Blood glucose increased [Unknown]
  - Cervix carcinoma [Recovered/Resolved]
  - Bladder prolapse [Recovered/Resolved]
  - Haemorrhage [Unknown]
  - Hypoglycaemia [Recovered/Resolved]
  - Prescribed overdose [Unknown]
  - Thrombosis [Unknown]
  - Drug prescribing error [Unknown]
  - Anaemia [Unknown]
